FAERS Safety Report 8134579 (Version 3)
Quarter: 2013Q1

REPORT INFORMATION
  Report Type: Report from Study
  Country: DE (occurrence: DE)
  Receive Date: 20110913
  Receipt Date: 20130228
  Transmission Date: 20140127
  Serious: Yes (Other)
  Sender: FDA-Public Use
  Company Number: PHHY2011DE79680

PATIENT
  Age: 71 Year
  Sex: Female
  Weight: 74 kg

DRUGS (6)
  1. ZOLEDRONATE [Suspect]
     Indication: BONE DISORDER
     Dosage: 4 MG/ 5ML EVERY 4 WEEKS
     Route: 042
     Dates: start: 20100209, end: 20100831
  2. ARIMIDEX [Concomitant]
     Dosage: 1 DF, QD
     Route: 048
     Dates: start: 20100209
  3. ENALAPRIL [Concomitant]
     Dosage: 10 MG, 1-0-1/2
     Dates: start: 20100311
  4. BISOBETA [Concomitant]
     Dosage: 25 MG, 1/2-0-1/2
     Dates: start: 20100311
  5. DICLO [Concomitant]
     Dosage: 25 MG, 1-0-1
     Dates: start: 20100311
  6. SIMVASTATIN [Concomitant]
     Dosage: 60 MG, 0-0-1/2
     Dates: start: 20100311

REACTIONS (3)
  - Creatinine renal clearance decreased [Recovering/Resolving]
  - Blood creatinine increased [Recovering/Resolving]
  - General physical health deterioration [Unknown]
